FAERS Safety Report 7076279 (Version 3)
Quarter: 2014Q3

REPORT INFORMATION
  Report Type: Spontaneous
  Country: US (occurrence: None)
  Receive Date: 20090803
  Receipt Date: 20140815
  Transmission Date: 20150326
  Serious: Yes (Hospitalization, Other)
  Sender: FDA-Public Use
  Company Number: 2009S1005938

PATIENT
  Age: 68 Year
  Sex: Female

DRUGS (17)
  1. THEOPHYLLINE (THEOPHYLLINE) [Concomitant]
     Active Substance: THEOPHYLLINE
  2. AMITRIPTYLINE (AMITRIPTYLINE) [Concomitant]
     Active Substance: AMITRIPTYLINE
  3. PHOSPHO-SODA [Suspect]
     Active Substance: SODIUM PHOSPHATE, DIBASIC\SODIUM PHOSPHATE, MONOBASIC
     Indication: COLONOSCOPY
     Route: 048
     Dates: start: 20060326
  4. TEQUIN (GATIFLOXACIN) [Concomitant]
  5. MAXZIDE (HYDROCHLOROTHIAZIDE) [Concomitant]
  6. ALBUTEROL (SALBUTAMOL) [Concomitant]
     Active Substance: ALBUTEROL
  7. ACCOLATE (ZAFIRLUKAST) [Concomitant]
  8. FLUOXETINE (FLUOXETINE) [Concomitant]
     Active Substance: FLUOXETINE HYDROCHLORIDE
  9. FLONASE [Concomitant]
     Active Substance: FLUTICASONE PROPIONATE
  10. FOSAMAX [Concomitant]
     Active Substance: ALENDRONATE SODIUM
  11. PREDNISONE (PREDNISONE) [Concomitant]
     Active Substance: PREDNISONE
  12. NYSTATIN (NYSTATIN) [Concomitant]
     Active Substance: NYSTATIN
  13. PREVACID [Concomitant]
     Active Substance: LANSOPRAZOLE
  14. MOEXIPRIL (MOEXIPRIL) [Concomitant]
  15. ZOCOR [Concomitant]
     Active Substance: SIMVASTATIN
  16. LEVOXYL (LEVOTHROXINE SODIUM) [Concomitant]
  17. VERAPAMIL [Concomitant]
     Active Substance: VERAPAMIL HYDROCHLORIDE

REACTIONS (5)
  - Dehydration [None]
  - Haemodialysis [None]
  - Dyspnoea [None]
  - Renal failure chronic [None]
  - Dialysis [None]

NARRATIVE: CASE EVENT DATE: 200604
